FAERS Safety Report 11742462 (Version 1)
Quarter: 2015Q4

REPORT INFORMATION
  Report Type: Spontaneous
  Country: US (occurrence: None)
  Receive Date: 20151113
  Receipt Date: 20151113
  Transmission Date: 20160304
  Serious: Yes (Hospitalization)
  Sender: FDA-Public Use
  Company Number: None

PATIENT
  Age: 68 Year
  Sex: Female

DRUGS (1)
  1. VITAMIN D3 [Suspect]
     Active Substance: CHOLECALCIFEROL
     Indication: DRUG THERAPY
     Route: 048

REACTIONS (10)
  - Blood potassium increased [None]
  - Product formulation issue [None]
  - Product label issue [None]
  - Hypertension [None]
  - Product measured potency issue [None]
  - Blood calcium increased [None]
  - Blood glucose increased [None]
  - Renal disorder [None]
  - Dialysis [None]
  - Medication error [None]

NARRATIVE: CASE EVENT DATE: 20151001
